FAERS Safety Report 4999096-8 (Version None)
Quarter: 2006Q1

REPORT INFORMATION
  Report Type: 
  Country: None (occurrence: None)
  Receive Date: 20060315
  Receipt Date: 20060106
  Transmission Date: 20060701
  Serious: Yes (Other)
  Sender: FDA-Public Use
  Company Number: 421975

PATIENT
  Age: 62 Year
  Sex: Female
  Weight: 73.9 kg

DRUGS (6)
  1. BONIVA [Suspect]
  2. VITAMIN D NOS (VITAMIN D NOS) [Concomitant]
  3. PREMARIN [Concomitant]
  4. CALCIUM (CALCIUM) [Concomitant]
  5. MAGNESIUM SULFATE [Concomitant]
  6. ACETAMINOPHEN [Concomitant]

REACTIONS (1)
  - FLATULENCE [None]
